FAERS Safety Report 24287817 (Version 1)
Quarter: 2024Q3

REPORT INFORMATION
  Report Type: Spontaneous
  Country: FR (occurrence: FR)
  Receive Date: 20240905
  Receipt Date: 20240905
  Transmission Date: 20241017
  Serious: Yes (Hospitalization)
  Sender: ELI LILLY AND CO
  Company Number: None

PATIENT
  Age: 50 Year
  Sex: Male
  Weight: 90 kg

DRUGS (2)
  1. CETUXIMAB [Suspect]
     Active Substance: CETUXIMAB
     Indication: Rectal adenocarcinoma
     Dosage: 1000 MG, UNKNOWN
     Route: 042
     Dates: start: 20240701
  2. ENCORAFENIB [Suspect]
     Active Substance: ENCORAFENIB
     Indication: Rectal adenocarcinoma
     Dosage: 150 MG, UNKNOWN
     Route: 048
     Dates: start: 20240709, end: 20240723

REACTIONS (1)
  - Cholestasis [Not Recovered/Not Resolved]

NARRATIVE: CASE EVENT DATE: 20240701
